FAERS Safety Report 13443375 (Version 1)
Quarter: 2017Q2

REPORT INFORMATION
  Report Type: Spontaneous
  Country: US (occurrence: US)
  Receive Date: 20170413
  Receipt Date: 20170413
  Transmission Date: 20170830
  Serious: No
  Sender: FDA-Public Use
  Company Number: None

PATIENT
  Age: 77 Year
  Sex: Male

DRUGS (2)
  1. NEXAVAR [Suspect]
     Active Substance: SORAFENIB
     Indication: HEPATIC CANCER
     Dosage: 400MG DAILY PER OS
     Dates: start: 20170310, end: 20170319
  2. NEXAVAR [Suspect]
     Active Substance: SORAFENIB
     Indication: HEPATIC CANCER
     Dosage: 200MG DAILY PER OS
     Dates: start: 20170325, end: 20170403

REACTIONS (5)
  - Decreased appetite [None]
  - Fatigue [None]
  - Dysphonia [None]
  - Therapy cessation [None]
  - Diarrhoea [None]

NARRATIVE: CASE EVENT DATE: 201703
